FAERS Safety Report 24652694 (Version 1)
Quarter: 2024Q4

REPORT INFORMATION
  Report Type: Spontaneous
  Country: DE (occurrence: DE)
  Receive Date: 20241122
  Receipt Date: 20241122
  Transmission Date: 20250115
  Serious: Yes (Hospitalization)
  Sender: CATALYST PHARMA
  Company Number: DE-CATALYSTPHARMACEUTICALPARTNERS-DE-CATA-24-01352

PATIENT
  Age: 15 Year
  Sex: Female

DRUGS (7)
  1. FYCOMPA [Suspect]
     Active Substance: PERAMPANEL
     Indication: Epilepsy
     Dosage: 2.0 MILLIGRAM(S) (2 MILLIGRAM(S), 1 IN 1 DAY)
     Route: 048
     Dates: start: 202402, end: 20240224
  2. FYCOMPA [Suspect]
     Active Substance: PERAMPANEL
     Dosage: 4.0 MILLIGRAM(S) (4 MILLIGRAM(S), 1 IN 1 DAY)
     Route: 048
     Dates: start: 20240225, end: 2024
  3. FYCOMPA [Suspect]
     Active Substance: PERAMPANEL
     Dosage: DOSE REDUCED (DOSE AND FREQUENCY UNKNOWN).
     Route: 048
     Dates: start: 2024, end: 2024
  4. CANNABIDIOL [Concomitant]
     Active Substance: CANNABIDIOL
     Indication: Product used for unknown indication
     Dosage: 900.0 MILLIGRAM(S) (900 MILLIGRAM(S), 1 IN 1 DAY) USING FOR YEARS
     Route: 048
  5. CLOBAZAM [Concomitant]
     Active Substance: CLOBAZAM
     Indication: Product used for unknown indication
     Dosage: 5.0 MILLIGRAM(S) (5 MILLIGRAM(S), 1 IN 1 DAY) USING FOR YEARS
     Route: 048
  6. VALPROATE [Concomitant]
     Active Substance: VALPROIC ACID
     Indication: Product used for unknown indication
     Dosage: 1200 MILLIGRAM(S) (1200 MILLIGRAM(S), 1 IN 1 DAY) USING FOR YEARS
     Route: 048
  7. MELATONIN [Concomitant]
     Active Substance: MELATONIN
     Indication: Product used for unknown indication
     Dosage: 5.0 MILLIGRAM(S) (5 MILLIGRAM(S), 1 IN 1 DAY), ONLY WHEN NEEDED.
     Route: 048

REACTIONS (2)
  - Pneumonia [Unknown]
  - Apathy [Recovered/Resolved]

NARRATIVE: CASE EVENT DATE: 20240226
